FAERS Safety Report 6661429-4 (Version None)
Quarter: 2010Q1

REPORT INFORMATION
  Report Type: 
  Country: None (occurrence: None)
  Receive Date: 20100331
  Receipt Date: 20100129
  Transmission Date: 20100710
  Serious: Yes (Hospitalization)
  Sender: FDA-Public Use
  Company Number: PHHY2010TW17458

PATIENT

DRUGS (1)
  1. EXJADE [Suspect]
     Dosage: 05 TABLET

REACTIONS (6)
  - BLISTER [None]
  - CELLULITIS [None]
  - DEBRIDEMENT [None]
  - PROCTALGIA [None]
  - PYREXIA [None]
  - SURGERY [None]
